FAERS Safety Report 5961307-X (Version None)
Quarter: 2008Q4

REPORT INFORMATION
  Report Type: 
  Country: None (occurrence: None)
  Receive Date: 20081119
  Receipt Date: 20080902
  Transmission Date: 20090506
  Serious: Yes (Other)
  Sender: FDA-Public Use
  Company Number: 2008S1015824

PATIENT
  Age: 45 Year
  Sex: Male

DRUGS (16)
  1. DIVALPROEX SODIUM [Suspect]
     Dosage: 1500 MG;TWICE A DAY
  2. BENZODIAZEPINE [Concomitant]
  3. HYDROXYZINE [Concomitant]
  4. BUSPIRONE HCL [Concomitant]
  5. ANTIPSYCHOTICS [Concomitant]
  6. ANTIPSYCHOTICS [Concomitant]
  7. OLANZAPINE [Concomitant]
  8. OLANZAPINE [Concomitant]
  9. ATORVASATIN [Concomitant]
  10. PAROXETINE HCL [Concomitant]
  11. DESMOPRESSIN ACETATE [Concomitant]
  12. ENALAPRIL MALEATE [Concomitant]
  13. SELENIUM [Concomitant]
  14. ZINC GLUCONATE [Concomitant]
  15. HYDROXYZINE [Concomitant]
  16. GEMFIBROZIL [Concomitant]

REACTIONS (1)
  - NEUTROPENIA [None]
